FAERS Safety Report 21401442 (Version 2)
Quarter: 2023Q4

REPORT INFORMATION
  Report Type: Spontaneous
  Country: FR (occurrence: FR)
  Receive Date: 20221003
  Receipt Date: 20231211
  Transmission Date: 20240109
  Serious: Yes (Hospitalization, Other)
  Sender: FDA-Public Use
  Company Number: FR-ROCHE-3177023

PATIENT
  Age: 56 Year
  Sex: Male

DRUGS (21)
  1. BEVACIZUMAB [Suspect]
     Active Substance: BEVACIZUMAB
     Indication: Colorectal cancer metastatic
     Dosage: 600 MILLIGRAM, CYCLE 07
     Route: 042
     Dates: start: 20220711
  2. DEVICE\YTTRIUM Y-90 [Suspect]
     Active Substance: DEVICE\YTTRIUM Y-90
     Indication: Colorectal cancer metastatic
     Dosage: UNK
     Route: 065
     Dates: start: 20220316
  3. DEVICE\YTTRIUM Y-90 [Suspect]
     Active Substance: DEVICE\YTTRIUM Y-90
     Dosage: UNK
     Route: 065
     Dates: start: 20220415
  4. OXALIPLATIN [Suspect]
     Active Substance: OXALIPLATIN
     Indication: Colorectal cancer metastatic
     Dosage: 260 MILLIGRAM, CYCLE 05
     Route: 040
     Dates: start: 20220303, end: 20220530
  5. OXALIPLATIN [Suspect]
     Active Substance: OXALIPLATIN
     Dosage: UNK, 4TH CYCLE
     Route: 042
     Dates: start: 20220506
  6. OXALIPLATIN [Suspect]
     Active Substance: OXALIPLATIN
     Dosage: UNK, 5TH CYCLE
     Route: 065
     Dates: start: 20220530
  7. ATEZOLIZUMAB [Suspect]
     Active Substance: ATEZOLIZUMAB
     Indication: Colorectal cancer metastatic
     Dosage: 1200 MILLIGRAM (CYCLE 07)
     Route: 040
     Dates: start: 20220303
  8. ATEZOLIZUMAB [Suspect]
     Active Substance: ATEZOLIZUMAB
     Dosage: 1200 MILLIGRAM (4TH CYCLE)
     Route: 065
     Dates: start: 20220506
  9. ATEZOLIZUMAB [Suspect]
     Active Substance: ATEZOLIZUMAB
     Dosage: CYCLE 07
     Route: 065
     Dates: start: 20220711
  10. CAPECITABINE [Suspect]
     Active Substance: CAPECITABINE
     Indication: Colorectal cancer metastatic
     Dosage: 4000 MILLIGRAM, 4TH CYCLE
     Route: 048
     Dates: start: 20220506
  11. CAPECITABINE [Suspect]
     Active Substance: CAPECITABINE
     Dosage: 4000 MILLIGRAM, CYCLE 07
     Route: 048
     Dates: start: 20220303, end: 20220725
  12. CAPECITABINE [Suspect]
     Active Substance: CAPECITABINE
     Dosage: UNK, CYCLE 07
     Route: 048
     Dates: start: 20220711
  13. ORALAIR [Concomitant]
     Active Substance: ANTHOXANTHUM ODORATUM POLLEN\DACTYLIS GLOMERATA POLLEN\LOLIUM PERENNE POLLEN\PHLEUM PRATENSE POLLEN\
     Indication: Asthma
     Route: 065
     Dates: start: 20211209
  14. VERAPAMIL [Concomitant]
     Active Substance: VERAPAMIL HYDROCHLORIDE
     Indication: Hypertension
     Dosage: 240 MILLIGRAM
     Route: 065
  15. ATORVASTATIN [Concomitant]
     Active Substance: ATORVASTATIN
     Indication: Dyslipidaemia
     Dosage: 40 MILLIGRAM
     Route: 065
  16. SERETIDE [Concomitant]
     Active Substance: FLUTICASONE PROPIONATE\SALMETEROL XINAFOATE
     Indication: Asthma
     Dosage: 500/50 MICROGRAM
     Route: 065
  17. ACARIZAX [Concomitant]
     Active Substance: DERMATOPHAGOIDES FARINAE\DERMATOPHAGOIDES PTERONYSSINUS
     Indication: Asthma
     Dosage: UNK
     Route: 065
     Dates: start: 20211209
  18. CETIRIZINE HYDROCHLORIDE [Concomitant]
     Active Substance: CETIRIZINE HYDROCHLORIDE
     Indication: Asthma
     Dosage: 10 MILLIGRAM
     Route: 065
  19. ALBUTEROL [Concomitant]
     Active Substance: ALBUTEROL
     Indication: Asthma
     Dosage: 100 MICROGRAM
     Route: 065
  20. RAMIPRIL [Concomitant]
     Active Substance: RAMIPRIL
     Indication: Hypertension
     Dosage: 5 MILLIGRAM
     Route: 065
  21. SINGULAIR [Concomitant]
     Active Substance: MONTELUKAST SODIUM
     Indication: Asthma
     Dosage: 100 MILLIGRAM
     Route: 065

REACTIONS (6)
  - Cholestasis [Unknown]
  - Hepatic cytolysis [Unknown]
  - Hepatocellular injury [Unknown]
  - Portal vein thrombosis [Unknown]
  - Venoocclusive liver disease [Recovered/Resolved]
  - Transaminases increased [Unknown]

NARRATIVE: CASE EVENT DATE: 20220703
